FAERS Safety Report 6676333-5 (Version None)
Quarter: 2010Q2

REPORT INFORMATION
  Report Type: 
  Country: None (occurrence: None)
  Receive Date: 20100408
  Receipt Date: 20100328
  Transmission Date: 20101027
  Serious: Yes (Disabling, Other)
  Sender: FDA-Public Use
  Company Number: 009456

PATIENT
  Age: 42 Year
  Sex: Male

DRUGS (6)
  1. KEPPRA [Suspect]
     Indication: CONVULSION
     Dosage: 1500 MG, ORAL (2000 MG)
     Route: 048
     Dates: end: 20080808
  2. DEPAKOTE [Concomitant]
  3. DILANTIN [Concomitant]
  4. ATENOLOL [Concomitant]
  5. LOVASTATIN [Concomitant]
  6. PREVACID [Concomitant]

REACTIONS (9)
  - ANGER [None]
  - ANXIETY [None]
  - DECREASED APPETITE [None]
  - DISTURBANCE IN ATTENTION [None]
  - DRUG WITHDRAWAL SYNDROME [None]
  - FEAR [None]
  - FORMICATION [None]
  - HYPERHIDROSIS [None]
  - IRRITABILITY [None]
